FAERS Safety Report 11794526 (Version 1)
Quarter: 2015Q4

REPORT INFORMATION
  Report Type: Spontaneous
  Country: US (occurrence: US)
  Receive Date: 20151202
  Receipt Date: 20151202
  Transmission Date: 20160305
  Serious: Yes (Life-Threatening, Hospitalization, Other)
  Sender: FDA-Public Use
  Company Number: US-BAYER-2015-475475

PATIENT
  Age: 32 Year
  Sex: Female

DRUGS (1)
  1. MIRENA [Suspect]
     Active Substance: LEVONORGESTREL
     Dosage: 20 MCG/24HR, CONT
     Route: 015
     Dates: start: 20120502, end: 20130131

REACTIONS (5)
  - Pregnancy with contraceptive device [None]
  - Abdominal pain [None]
  - Infection [None]
  - Drug ineffective [None]
  - Device dislocation [None]

NARRATIVE: CASE EVENT DATE: 20130131
